FAERS Safety Report 8376214-5 (Version None)
Quarter: 2012Q2

REPORT INFORMATION
  Report Type: 
  Country: None (occurrence: None)
  Receive Date: 20120522
  Receipt Date: 20120514
  Transmission Date: 20120825
  Serious: Yes (Hospitalization, Other)
  Sender: FDA-Public Use
  Company Number: US-SANOFI-AVENTIS-2012SA034383

PATIENT
  Sex: Female
  Weight: 65.9 kg

DRUGS (3)
  1. LEXAPRO [Concomitant]
  2. PLAVIX [Suspect]
     Route: 048
  3. KEPPRA [Concomitant]

REACTIONS (11)
  - MUSCULOSKELETAL DISORDER [None]
  - MECHANICAL VENTILATION [None]
  - CENTRAL VENOUS CATHETERISATION [None]
  - DEVICE RELATED INFECTION [None]
  - PNEUMONIA [None]
  - WEANING FAILURE [None]
  - TRACHEOSTOMY [None]
  - FOREIGN BODY ASPIRATION [None]
  - GASTROINTESTINAL DISORDER [None]
  - BEDRIDDEN [None]
  - LOSS OF CONTROL OF LEGS [None]
